FAERS Safety Report 5400012-5 (Version None)
Quarter: 2007Q3

REPORT INFORMATION
  Report Type: 
  Country: None (occurrence: None)
  Receive Date: 20070726
  Receipt Date: 20070726
  Transmission Date: 20080115
  Serious: Yes (Other)
  Sender: FDA-Public Use
  Company Number: None

PATIENT
  Age: 77 Year
  Sex: Female
  Weight: 80.2867 kg

DRUGS (1)
  1. PACILTAXEL 300MG/50ML [Suspect]
     Indication: BREAST CANCER
     Dosage: 127MG ONCE IV DRIP
     Route: 041
     Dates: start: 20070418, end: 20070418

REACTIONS (5)
  - BACK PAIN [None]
  - CHEST PAIN [None]
  - DIZZINESS [None]
  - FEELING HOT [None]
  - PAIN IN EXTREMITY [None]
